FAERS Safety Report 10380729 (Version 1)
Quarter: 2014Q3

REPORT INFORMATION
  Report Type: Report from Study
  Country: US (occurrence: US)
  Receive Date: 20140813
  Receipt Date: 20140813
  Transmission Date: 20150326
  Serious: Yes (Other)
  Sender: FDA-Public Use
  Company Number: US-ROCHE-1445894

PATIENT
  Age: 56 Year
  Sex: Male

DRUGS (42)
  1. MYCOPHENOLATE MOFETIL. [Suspect]
     Active Substance: MYCOPHENOLATE MOFETIL
     Indication: RENAL TRANSPLANT
     Route: 065
  2. DILTIAZEM [Concomitant]
     Active Substance: DILTIAZEM
  3. VERSED [Concomitant]
     Active Substance: MIDAZOLAM HYDROCHLORIDE
  4. GLYCOPYRROLATE. [Concomitant]
     Active Substance: GLYCOPYRROLATE
  5. ROCURONIUM [Concomitant]
     Active Substance: ROCURONIUM BROMIDE
  6. PROTONIX (UNITED STATES) [Concomitant]
  7. ISOFLURANE. [Concomitant]
     Active Substance: ISOFLURANE
  8. DILAUDID [Concomitant]
     Active Substance: HYDROMORPHONE HYDROCHLORIDE
  9. FLUDROCORTISONE [Concomitant]
     Active Substance: FLUDROCORTISONE
  10. VECURONIUM [Concomitant]
     Active Substance: VECURONIUM BROMIDE
  11. DEXTROSE. [Concomitant]
     Active Substance: DEXTROSE
  12. CALCIUM ACETATE. [Concomitant]
     Active Substance: CALCIUM ACETATE
  13. SENNOSIDES [Concomitant]
     Active Substance: SENNOSIDES
  14. ACETYLSALICYLIC ACID [Concomitant]
     Active Substance: ASPIRIN
  15. AMLODIPINE [Concomitant]
     Active Substance: AMLODIPINE BESYLATE
  16. BACTRIM [Concomitant]
     Active Substance: SULFAMETHOXAZOLE\TRIMETHOPRIM
  17. BLINDED QPI-1002 [Suspect]
     Active Substance: INVESTIGATIONAL PRODUCT
     Indication: RENAL TRANSPLANT
     Route: 042
     Dates: start: 20130301
  18. FAMOTIDINE. [Concomitant]
     Active Substance: FAMOTIDINE
  19. CEFAZOLIN [Concomitant]
     Active Substance: CEFAZOLIN
  20. MAGNESIUM SULFATE [Concomitant]
     Active Substance: MAGNESIUM SULFATE
  21. NYSTATIN. [Concomitant]
     Active Substance: NYSTATIN
  22. VALGANCICLOVIR [Concomitant]
     Active Substance: VALGANCICLOVIR
  23. INSULIN [Concomitant]
     Active Substance: INSULIN NOS
  24. ALBUMIN [Concomitant]
     Active Substance: ALBUMIN (HUMAN)
  25. ATENOLOL. [Concomitant]
     Active Substance: ATENOLOL
  26. CALCIUM GLUCONATE. [Concomitant]
     Active Substance: CALCIUM GLUCONATE
  27. CALCIUM ACETATE. [Concomitant]
     Active Substance: CALCIUM ACETATE
  28. PRAVASTATIN [Concomitant]
     Active Substance: PRAVASTATIN\PRAVASTATIN SODIUM
  29. MANNITOL. [Concomitant]
     Active Substance: MANNITOL
  30. DOPAMINE [Concomitant]
     Active Substance: DOPAMINE\DOPAMINE HYDROCHLORIDE
  31. GLIPIZIDE. [Concomitant]
     Active Substance: GLIPIZIDE
  32. HYDRALAZINE [Concomitant]
     Active Substance: HYDRALAZINE HYDROCHLORIDE
  33. EPHEDRINE [Concomitant]
     Active Substance: EPHEDRINE
  34. HEPARIN [Concomitant]
     Active Substance: HEPARIN SODIUM
  35. ACETAMINOPHEN. [Concomitant]
     Active Substance: ACETAMINOPHEN
  36. CHOLECALCIFEROL [Concomitant]
     Active Substance: CHOLECALCIFEROL
  37. DOCUSATE CALCIUM. [Concomitant]
     Active Substance: DOCUSATE CALCIUM
  38. FENTANYL. [Concomitant]
     Active Substance: FENTANYL
  39. ANCEF (UNITED STATES) [Concomitant]
  40. BENADRYL [Concomitant]
     Active Substance: DIPHENHYDRAMINE HYDROCHLORIDE
  41. SEVELAMER [Concomitant]
     Active Substance: SEVELAMER
  42. FUROSEMIDE. [Concomitant]
     Active Substance: FUROSEMIDE

REACTIONS (12)
  - Hyperkalaemia [None]
  - Back pain [None]
  - Anaemia [None]
  - Hypophosphatasia [None]
  - Amylase increased [None]
  - Hypophosphataemia [None]
  - Drug ineffective [None]
  - Kidney transplant rejection [None]
  - Lipase increased [None]
  - Transplant rejection [Recovered/Resolved]
  - Hyperglycaemia [None]
  - Acidosis [None]

NARRATIVE: CASE EVENT DATE: 20130927
